FAERS Safety Report 18667160 (Version 3)
Quarter: 2021Q3

REPORT INFORMATION
  Report Type: Report from Study
  Country: US (occurrence: US)
  Receive Date: 20201228
  Receipt Date: 20210910
  Transmission Date: 20211014
  Serious: No
  Sender: FDA-Public Use
  Company Number: NVSC2020US334508

PATIENT
  Sex: Female

DRUGS (1)
  1. KESIMPTA [Suspect]
     Active Substance: OFATUMUMAB
     Indication: PRODUCT USED FOR UNKNOWN INDICATION
     Dosage: UNK
     Route: 065

REACTIONS (7)
  - Wrong technique in product usage process [Unknown]
  - Migraine [Unknown]
  - Pain in extremity [Unknown]
  - Hypoaesthesia [Unknown]
  - Fear of injection [Unknown]
  - Nervousness [Unknown]
  - Myalgia [Unknown]
